FAERS Safety Report 4431121-5 (Version None)
Quarter: 2004Q3

REPORT INFORMATION
  Report Type: 
  Country: None (occurrence: None)
  Receive Date: 20040817
  Receipt Date: 20040802
  Transmission Date: 20050211
  Serious: Yes (Hospitalization)
  Sender: FDA-Public Use
  Company Number: 04P-062-0269010

PATIENT
  Sex: Male
  Weight: 122 kg

DRUGS (8)
  1. FLOTRIN TABLETS (HYTRIN) (TERAZOSIN HYDROCHLORIDE) (TERAZOSIN HYDROCHL [Suspect]
     Indication: SUICIDE ATTEMPT
     Dosage: 18 MG, PER ORAL
     Route: 048
     Dates: start: 20040802, end: 20040802
  2. PHENOBARBITAL TAB [Suspect]
     Indication: SUICIDE ATTEMPT
     Dosage: 100 MG, 7 IN 1 D, PER ORAL
     Route: 048
     Dates: start: 20040802, end: 20040802
  3. L-THYROXIN 100 [Suspect]
     Indication: SUICIDE ATTEMPT
     Dosage: 7 TABLET, PER ORAL
     Route: 048
     Dates: start: 20040802, end: 20040802
  4. GLIMEPIRIDE [Suspect]
     Indication: SUICIDE ATTEMPT
     Dosage: 3 MG, 10 IN 1 D, PER ORAL
     Route: 048
     Dates: start: 20040802, end: 20040802
  5. RAMIPRIL [Suspect]
     Indication: SUICIDE ATTEMPT
     Dosage: 7 TABLET, PER ORAL
     Route: 048
     Dates: start: 20040802, end: 20040802
  6. METOPROLOL [Suspect]
     Indication: SUICIDE ATTEMPT
     Dosage: 100 MG, 7 IN 1 D, PER ORAL
     Route: 048
     Dates: start: 20040802, end: 20040802
  7. CITALOPRAM [Suspect]
     Indication: SUICIDE ATTEMPT
     Dosage: 70 MG, PER ORAL
     Route: 048
     Dates: start: 20040802, end: 20040802
  8. PHENYTOIN [Suspect]
     Indication: SUICIDE ATTEMPT
     Dosage: 100 MG, 21 IN 1 D, PER ORAL
     Route: 048
     Dates: start: 20040802, end: 20040802

REACTIONS (3)
  - FATIGUE [None]
  - MULTIPLE DRUG OVERDOSE INTENTIONAL [None]
  - SUICIDE ATTEMPT [None]
